FAERS Safety Report 4459818-1 (Version None)
Quarter: 2004Q3

REPORT INFORMATION
  Report Type: 
  Country: None (occurrence: None)
  Receive Date: 20040928
  Receipt Date: 20040121
  Transmission Date: 20050211
  Serious: No
  Sender: FDA-Public Use
  Company Number: US-BRISTOL-MYERS SQUIBB COMPANY-12483152

PATIENT
  Age: 18 Year
  Sex: Female

DRUGS (1)
  1. TRIMOX [Suspect]

REACTIONS (1)
  - EYE PAIN [None]
